APPROVED DRUG PRODUCT: TOLTERODINE TARTRATE
Active Ingredient: TOLTERODINE TARTRATE
Strength: 4MG
Dosage Form/Route: CAPSULE, EXTENDED RELEASE;ORAL
Application: A201486 | Product #002
Applicant: AUROBINDO PHARMA USA INC
Approved: Oct 31, 2013 | RLD: No | RS: No | Type: DISCN